FAERS Safety Report 8152350-3 (Version None)
Quarter: 2012Q1

REPORT INFORMATION
  Report Type: 
  Country: None (occurrence: None)
  Receive Date: 20120214
  Receipt Date: 20120206
  Transmission Date: 20120608
  Serious: Yes (Other)
  Sender: FDA-Public Use
  Company Number: WAES 1202USA01492

PATIENT
  Age: 70 Year
  Sex: Female

DRUGS (6)
  1. PLETAL [Concomitant]
  2. METFORMIN HCL [Concomitant]
  3. JANUVIA [Suspect]
     Indication: TYPE 2 DIABETES MELLITUS
     Dosage: 50 MG/DAILY PO
     Route: 048
     Dates: start: 20100125
  4. PRAVASTATIN SODIUM [Concomitant]
  5. MICARDIS [Concomitant]
  6. GLUFAST [Concomitant]

REACTIONS (6)
  - ANGINA UNSTABLE [None]
  - BLOOD GLUCOSE INCREASED [None]
  - CORONARY ARTERY OCCLUSION [None]
  - GLYCOSYLATED HAEMOGLOBIN INCREASED [None]
  - BLOOD PRESSURE INCREASED [None]
  - ELECTROCARDIOGRAM ST SEGMENT DEPRESSION [None]
